FAERS Safety Report 20339125 (Version 1)
Quarter: 2022Q1

REPORT INFORMATION
  Report Type: Spontaneous
  Country: CN (occurrence: None)
  Receive Date: 20220117
  Receipt Date: 20220117
  Transmission Date: 20220424
  Serious: Yes (Other)
  Sender: FDA-Public Use
  Company Number: CN-ROCHE-2997958

PATIENT
  Age: 34 Year
  Sex: Female
  Weight: 47 kg

DRUGS (4)
  1. BEVACIZUMAB [Suspect]
     Active Substance: BEVACIZUMAB
     Indication: Signet-ring cell carcinoma
     Route: 041
     Dates: start: 20211213, end: 20211213
  2. OXALIPLATIN [Suspect]
     Active Substance: OXALIPLATIN
     Indication: Signet-ring cell carcinoma
     Route: 041
     Dates: start: 20211213, end: 20211213
  3. SODIUM CHLORIDE [Concomitant]
     Active Substance: SODIUM CHLORIDE
     Route: 041
     Dates: start: 20211213, end: 20211213
  4. DEXTROSE [Concomitant]
     Active Substance: DEXTROSE
     Route: 041
     Dates: start: 20211213, end: 20211213

REACTIONS (4)
  - Oropharyngeal discomfort [Recovered/Resolved]
  - Hypoaesthesia [Recovering/Resolving]
  - Skin warm [Recovered/Resolved]
  - Peripheral paralysis [Recovering/Resolving]

NARRATIVE: CASE EVENT DATE: 20211213
